FAERS Safety Report 8346550-7 (Version None)
Quarter: 2012Q2

REPORT INFORMATION
  Report Type: 
  Country: None (occurrence: None)
  Receive Date: 20120509
  Receipt Date: 20120430
  Transmission Date: 20120825
  Serious: Yes (Death)
  Sender: FDA-Public Use
  Company Number: PHHY2012CA022697

PATIENT
  Sex: Female

DRUGS (10)
  1. METFORMIN HCL [Concomitant]
     Indication: TYPE 2 DIABETES MELLITUS
     Dosage: 500 MG, BID
  2. SYNTHROID [Concomitant]
     Indication: HYPOTHYROIDISM
     Dosage: 75 UG, UNK
  3. OXYGEN [Concomitant]
     Indication: RESPIRATORY FAILURE
  4. ZOLEDRONOC ACID [Suspect]
     Indication: OSTEOPOROSIS
     Dosage: UNK UKN, UNK
     Route: 042
     Dates: start: 20091118
  5. OXYGEN [Concomitant]
     Dosage: 4 L (1.5L/DAY - 2.5L/DAY), UNK
  6. VITAMIN D [Concomitant]
     Indication: OSTEOPOROSIS
     Dosage: 400 UKN, DAILY
  7. CRESTOR [Concomitant]
     Dosage: 10 UKN, UNK
  8. CALCIUM [Concomitant]
     Indication: OSTEOPOROSIS
  9. ZOLEDRONOC ACID [Suspect]
     Dosage: UNK UKN, UNK
     Route: 042
     Dates: start: 20101122
  10. PREDNISONE TAB [Concomitant]
     Dosage: 10 MG, DAILY

REACTIONS (8)
  - STRESS [None]
  - DEATH [None]
  - FATIGUE [None]
  - COLONIC POLYP [None]
  - WEIGHT DECREASED [None]
  - BONE PAIN [None]
  - DECREASED APPETITE [None]
  - DISEASE PROGRESSION [None]
